FAERS Safety Report 8408235-8 (Version None)
Quarter: 2012Q2

REPORT INFORMATION
  Report Type: 
  Country: None (occurrence: None)
  Receive Date: 20120604
  Receipt Date: 20120530
  Transmission Date: 20120825
  Serious: Yes (Other)
  Sender: FDA-Public Use
  Company Number: US-BAYER-2012-016319

PATIENT
  Age: 81 Year
  Sex: Female
  Weight: 77 kg

DRUGS (2)
  1. GADAVIST [Suspect]
     Indication: NUCLEAR MAGNETIC RESONANCE IMAGING BRAIN
     Dosage: 7.5 UNK, ONCE
  2. GADAVIST [Suspect]
     Indication: MENINGIOMA

REACTIONS (4)
  - URTICARIA [None]
  - PRURITUS [None]
  - LIP SWELLING [None]
  - SKIN TIGHTNESS [None]
